FAERS Safety Report 15140069 (Version 1)
Quarter: 2018Q3

REPORT INFORMATION
  Report Type: Spontaneous
  Country: US (occurrence: US)
  Receive Date: 20180618
  Receipt Date: 20180618
  Transmission Date: 20181010
  Serious: Yes (Death)
  Sender: FDA-Public Use
  Company Number: None

PATIENT
  Age: 81 Year
  Sex: Male
  Weight: 94.95 kg

DRUGS (1)
  1. HARVONI [Suspect]
     Active Substance: LEDIPASVIR\SOFOSBUVIR
     Indication: HEPATITIS C
     Route: 048
     Dates: start: 20180525, end: 20180602

REACTIONS (5)
  - Thrombocytopenia [None]
  - Encephalopathy [None]
  - Hypersomnia [None]
  - Fatigue [None]
  - Hypercalcaemia [None]

NARRATIVE: CASE EVENT DATE: 20180605
